FAERS Safety Report 7208986-7 (Version None)
Quarter: 2011Q1

REPORT INFORMATION
  Report Type: 
  Country: None (occurrence: None)
  Receive Date: 20110104
  Receipt Date: 20101221
  Transmission Date: 20110831
  Serious: Yes (Other)
  Sender: FDA-Public Use
  Company Number: PHHY2010IT86741

PATIENT
  Age: 6 Month
  Sex: Male

DRUGS (2)
  1. PROPRANOLOL [Suspect]
     Indication: HEPATIC LESION
  2. PROPRANOLOL [Suspect]
     Indication: HAEMANGIOMA
     Dosage: 2 MG? KG ? DAY IN THREE DIVIDED DOSES

REACTIONS (5)
  - HYPOGLYCAEMIC SEIZURE [None]
  - INCREASED APPETITE [None]
  - BLOOD KETONE BODY INCREASED [None]
  - KETONURIA [None]
  - LOSS OF CONSCIOUSNESS [None]
